FAERS Safety Report 5506650-3 (Version None)
Quarter: 2007Q4

REPORT INFORMATION
  Report Type: 
  Country: None (occurrence: None)
  Receive Date: 20071105
  Receipt Date: 20070731
  Transmission Date: 20080405
  Serious: Yes (Other)
  Sender: FDA-Public Use
  Company Number: US-ROCHE-507531

PATIENT
  Age: 27 Year
  Sex: Female

DRUGS (6)
  1. ACCUTANE [Suspect]
     Indication: DRUG USE FOR UNKNOWN INDICATION
     Dosage: 20MG BID FOR ONE MONTH, THEN 20MG TID FOR ONE MONTH, THEN 40MG BID(2 IN AM AND 2 IN PM)
     Route: 048
     Dates: start: 20070228, end: 20070328
  2. ACCUTANE [Suspect]
     Route: 048
     Dates: start: 20070328, end: 20070428
  3. ACCUTANE [Suspect]
     Route: 048
     Dates: start: 20070528, end: 20070630
  4. ACCUTANE [Suspect]
     Dosage: ACCUTANE DOSAGE NOT PROVIDED FOR JULY 2007
     Route: 048
     Dates: start: 20070701, end: 20070706
  5. SOTRET [Suspect]
     Indication: DRUG USE FOR UNKNOWN INDICATION
     Route: 048
     Dates: start: 20070706, end: 20070710
  6. NUVARING [Concomitant]
     Dates: start: 20061101

REACTIONS (2)
  - ABORTION INDUCED [None]
  - NO ADVERSE REACTION [None]
